FAERS Safety Report 10878826 (Version 1)
Quarter: 2015Q1

REPORT INFORMATION
  Report Type: Spontaneous
  Country: US (occurrence: None)
  Receive Date: 20150224
  Receipt Date: 20150224
  Transmission Date: 20150721
  Serious: Yes (Other)
  Sender: FDA-Public Use
  Company Number: None

PATIENT
  Age: 34 Year
  Sex: Female
  Weight: 104.33 kg

DRUGS (5)
  1. MELOXICAM 15 MG UNICHEM PHARMAC [Suspect]
     Active Substance: MELOXICAM
     Indication: CARPAL TUNNEL SYNDROME
     Dosage: 1 PILL
     Route: 048
     Dates: start: 20150220, end: 20150220
  2. LEMON BALM + HOLY BASIL [Concomitant]
  3. MELOXICAM 15 MG UNICHEM PHARMAC [Suspect]
     Active Substance: MELOXICAM
     Indication: SYNOVIAL CYST
     Dosage: 1 PILL
     Route: 048
     Dates: start: 20150220, end: 20150220
  4. METHYLPREDISOLONE [Concomitant]
     Active Substance: METHYLPREDNISOLONE
  5. THEANINE [Concomitant]

REACTIONS (11)
  - Swelling face [None]
  - Hypoaesthesia [None]
  - Blister [None]
  - Local swelling [None]
  - Skin tightness [None]
  - Erythema [None]
  - Skin discolouration [None]
  - Burning sensation [None]
  - Skin exfoliation [None]
  - Tenderness [None]
  - Pruritus [None]

NARRATIVE: CASE EVENT DATE: 20150220
